FAERS Safety Report 6469063-6 (Version None)
Quarter: 2009Q4

REPORT INFORMATION
  Report Type: 
  Country: None (occurrence: None)
  Receive Date: 20091202
  Receipt Date: 20091202
  Transmission Date: 20100525
  Serious: Yes (Hospitalization)
  Sender: FDA-Public Use
  Company Number: None

PATIENT
  Sex: Male
  Weight: 87.3 kg

DRUGS (8)
  1. ERLOTINIB 150MG OSI PHARMACEUTICAL [Suspect]
     Indication: COLON CANCER METASTATIC
     Dosage: 150MG ORALLY EVERY DAY
     Route: 048
     Dates: start: 20091102
  2. LIPTIOR [Concomitant]
  3. GLUCOTROL XL [Concomitant]
  4. TOPROL-XL [Concomitant]
  5. NORVASC [Concomitant]
  6. ZESTRIL [Concomitant]
  7. COMPAZINE [Concomitant]
  8. ASPIRIN [Concomitant]

REACTIONS (4)
  - ASTHENIA [None]
  - BACTERIAL INFECTION [None]
  - BLOOD CULTURE POSITIVE [None]
  - PYREXIA [None]
